FAERS Safety Report 21911229 (Version 2)
Quarter: 2023Q1

REPORT INFORMATION
  Report Type: Report from Study
  Country: PL (occurrence: PL)
  Receive Date: 20230125
  Receipt Date: 20230217
  Transmission Date: 20230418
  Serious: Yes (Hospitalization)
  Sender: FDA-Public Use
  Company Number: PL-JNJFOC-20230132503

PATIENT
  Age: 73 Year
  Sex: Male
  Weight: 99 kg

DRUGS (26)
  1. DARATUMUMAB [Suspect]
     Active Substance: DARATUMUMAB
     Indication: Plasma cell myeloma
     Route: 058
     Dates: start: 20190823, end: 20230111
  2. BORTEZOMIB [Suspect]
     Active Substance: BORTEZOMIB
     Indication: Plasma cell myeloma
     Route: 058
     Dates: end: 20200206
  3. LENALIDOMIDE [Suspect]
     Active Substance: LENALIDOMIDE
     Indication: Plasma cell myeloma
     Route: 048
     Dates: start: 20190823, end: 20230111
  4. DEXAMETHASONE [Concomitant]
     Active Substance: DEXAMETHASONE
     Indication: Plasma cell myeloma
     Route: 065
     Dates: start: 20190823, end: 20230111
  5. FORMOTEROL [Concomitant]
     Active Substance: FORMOTEROL
     Indication: Chronic obstructive pulmonary disease
     Route: 055
     Dates: start: 2015
  6. ACYCLOVIR [Concomitant]
     Active Substance: ACYCLOVIR
     Indication: Antiviral prophylaxis
     Route: 048
     Dates: start: 20190823
  7. ALFACALCIDOL [Concomitant]
     Active Substance: ALFACALCIDOL
     Indication: Vitamin supplementation
     Route: 048
     Dates: start: 20190823
  8. CALCIUM CARBONATE [Concomitant]
     Active Substance: CALCIUM CARBONATE
     Indication: Osteoporosis prophylaxis
     Route: 048
     Dates: start: 20190823
  9. ALLOPURINOL [Concomitant]
     Active Substance: ALLOPURINOL
     Indication: Hyperuricaemia
     Route: 048
     Dates: start: 20190823
  10. METOPROLOL SUCCINATE [Concomitant]
     Active Substance: METOPROLOL SUCCINATE
     Indication: Hypertension
     Route: 048
     Dates: start: 20190906
  11. METOPROLOL SUCCINATE [Concomitant]
     Active Substance: METOPROLOL SUCCINATE
     Route: 048
     Dates: start: 20220322
  12. POTASSIUM CHLORIDE [Concomitant]
     Active Substance: POTASSIUM CHLORIDE
     Indication: Mineral supplementation
     Route: 048
     Dates: start: 20200605
  13. TORSEMIDE [Concomitant]
     Active Substance: TORSEMIDE
     Indication: Atrial fibrillation
     Route: 048
     Dates: start: 20200605
  14. XARELTO [Concomitant]
     Active Substance: RIVAROXABAN
     Indication: Thrombosis prophylaxis
     Route: 048
     Dates: start: 20210319
  15. GLUCOPHAGE [Concomitant]
     Active Substance: METFORMIN HYDROCHLORIDE
     Indication: Hyperglycaemia
     Route: 048
     Dates: start: 20210318
  16. GLUCOPHAGE [Concomitant]
     Active Substance: METFORMIN HYDROCHLORIDE
     Route: 048
     Dates: start: 20210318
  17. ZOLEDRONIC ACID [Concomitant]
     Active Substance: ZOLEDRONIC ACID
     Indication: Osteoporosis prophylaxis
     Route: 042
     Dates: start: 20211124
  18. MAGNEFAR B6 [MAGNESIUM ASPARTATE;PYRIDOXINE HYDROCHLORIDE] [Concomitant]
     Indication: Cardiac failure
     Route: 048
     Dates: start: 20210810
  19. DEXILANT [Concomitant]
     Active Substance: DEXLANSOPRAZOLE
     Indication: Gastrointestinal disorder therapy
     Route: 048
     Dates: start: 20211125
  20. INSULIN HUMAN [Concomitant]
     Active Substance: INSULIN HUMAN
     Indication: Prophylaxis
     Route: 058
     Dates: start: 20210413
  21. NOVORAPID [Concomitant]
     Active Substance: INSULIN ASPART
     Indication: Prophylaxis
     Route: 058
     Dates: start: 20210413
  22. NOVORAPID [Concomitant]
     Active Substance: INSULIN ASPART
     Route: 058
     Dates: start: 20220413
  23. .ALPHA.-LIPOIC ACID [Concomitant]
     Active Substance: .ALPHA.-LIPOIC ACID
     Indication: Polyneuropathy
     Route: 048
     Dates: start: 20220408
  24. GABAPENTIN [Concomitant]
     Active Substance: GABAPENTIN
     Indication: Polyneuropathy
     Route: 048
     Dates: start: 20220408, end: 20220413
  25. GABAPENTIN [Concomitant]
     Active Substance: GABAPENTIN
     Route: 048
     Dates: start: 20220414
  26. DALFAZ UNO [Concomitant]
     Indication: Prophylaxis
     Route: 048
     Dates: start: 20220616

REACTIONS (1)
  - Polyneuropathy [Recovered/Resolved with Sequelae]

NARRATIVE: CASE EVENT DATE: 20221208
